FAERS Safety Report 6729858-8 (Version None)
Quarter: 2010Q2

REPORT INFORMATION
  Report Type: 
  Country: None (occurrence: None)
  Receive Date: 20100513
  Receipt Date: 20100428
  Transmission Date: 20101027
  Serious: Yes (Other)
  Sender: FDA-Public Use
  Company Number: AUR-APL-2010-01203

PATIENT
  Age: 39 Year
  Sex: Female

DRUGS (2)
  1. GABAPENTIN [Suspect]
     Indication: MIGRAINE
  2. LYRICA [Suspect]
     Indication: MIGRAINE
     Dosage: 2 X 300MG CAPSULES
     Dates: start: 20100414

REACTIONS (6)
  - DRUG DISPENSING ERROR [None]
  - FEELING ABNORMAL [None]
  - HYPOAESTHESIA [None]
  - NAUSEA [None]
  - PARAESTHESIA [None]
  - SWOLLEN TONGUE [None]
